FAERS Safety Report 4661327-1 (Version None)
Quarter: 2005Q2

REPORT INFORMATION
  Report Type: 
  Country: None (occurrence: None)
  Receive Date: 20050427
  Receipt Date: 20050316
  Transmission Date: 20051028
  Serious: No
  Sender: FDA-Public Use
  Company Number: WAES 0503USA03054

PATIENT

DRUGS (2)
  1. EMEND [Suspect]
  2. METHOTREXATE [Concomitant]

REACTIONS (1)
  - DRUG CLEARANCE DECREASED [None]
